FAERS Safety Report 5319111-1 (Version None)
Quarter: 2007Q2

REPORT INFORMATION
  Report Type: 
  Country: None (occurrence: None)
  Receive Date: 20070508
  Receipt Date: 20070503
  Transmission Date: 20071010
  Serious: Yes (Hospitalization)
  Sender: FDA-Public Use
  Company Number: A0650155A

PATIENT
  Age: 29 Year
  Sex: Female

DRUGS (11)
  1. FLOLAN [Suspect]
     Indication: PULMONARY HYPERTENSION
     Dosage: 45MGKM CONTINUOUS
     Route: 042
     Dates: start: 20040128
  2. SILDENAFIL CITRATE [Suspect]
     Indication: PULMONARY HYPERTENSION
     Route: 048
     Dates: end: 20060802
  3. KLOR-CON [Concomitant]
  4. PRILOSEC [Concomitant]
  5. LASIX [Concomitant]
  6. COUMADIN [Concomitant]
  7. PREDNISONE TAB [Concomitant]
  8. VISTARIL [Concomitant]
  9. SPIRONOLACTONE [Concomitant]
  10. BACTROBAN [Concomitant]
  11. TOPICORT [Concomitant]

REACTIONS (6)
  - DERMATITIS ALLERGIC [None]
  - PRURITUS [None]
  - PYREXIA [None]
  - RASH [None]
  - SKIN LESION [None]
  - SKIN ULCER [None]
